FAERS Safety Report 15980298 (Version 6)
Quarter: 2020Q2

REPORT INFORMATION
  Report Type: Report from Study
  Country: DE (occurrence: DE)
  Receive Date: 20190219
  Receipt Date: 20200430
  Transmission Date: 20200713
  Serious: Yes (Hospitalization, Other)
  Sender: FDA-Public Use
  Company Number: PHHY2019DE037811

PATIENT
  Sex: Female
  Weight: 65 kg

DRUGS (25)
  1. COSENTYX [Suspect]
     Active Substance: SECUKINUMAB
     Indication: PSORIATIC ARTHROPATHY
     Dosage: 300 MG, PER APPLICATION (PRE-FILLED PEN)
     Route: 058
     Dates: start: 20180513, end: 20180513
  2. COSENTYX [Suspect]
     Active Substance: SECUKINUMAB
     Dosage: 300 MG, PER APPLICATION (PRE-FILLED PEN)
     Route: 065
     Dates: start: 20180710
  3. COSENTYX [Suspect]
     Active Substance: SECUKINUMAB
     Dosage: 300 MG, PER APPLICATION (PRE-FILLED PEN)
     Route: 065
     Dates: start: 20180909
  4. METYPRED [Concomitant]
     Active Substance: METHYLPREDNISOLONE
     Indication: PSORIATIC ARTHROPATHY
     Dosage: 4 MG, QD
     Route: 048
     Dates: start: 20180508, end: 20190314
  5. METYPRED [Concomitant]
     Active Substance: METHYLPREDNISOLONE
     Dosage: 8 MG, QD
     Route: 048
     Dates: start: 20190315
  6. SANDOCAL [Concomitant]
     Indication: PROPHYLAXIS
     Dosage: 1 DF, QD
     Route: 048
     Dates: start: 20130424
  7. BONVIVA [Concomitant]
     Active Substance: IBANDRONATE SODIUM
     Indication: OSTEOPOROSIS PROPHYLAXIS
     Dosage: UNK PREFILLED SYRINGE (ONCE EVERY THREE MONTH)
     Route: 042
     Dates: start: 20130424
  8. AMPHO-MORONAL [Concomitant]
     Active Substance: AMPHOTERICIN B
     Indication: PRODUCT USED FOR UNKNOWN INDICATION
     Dosage: UNK UNK, PRN
     Route: 065
     Dates: start: 20181009
  9. COSENTYX [Suspect]
     Active Substance: SECUKINUMAB
     Dosage: 300 MG, PER APPLICATION (PRE-FILLED PEN)
     Route: 058
     Dates: start: 20181007
  10. COSENTYX [Suspect]
     Active Substance: SECUKINUMAB
     Dosage: 300 MG, PER APPLICATION (PRE-FILLED PEN)
     Route: 058
     Dates: start: 20181025
  11. QUENSYL [Concomitant]
     Active Substance: HYDROXYCHLOROQUINE
     Indication: PSORIATIC ARTHROPATHY
     Dosage: 200 MG, BID
     Route: 048
     Dates: start: 20130424
  12. PANTOZOL [Concomitant]
     Active Substance: PANTOPRAZOLE SODIUM
     Indication: PROPHYLAXIS
     Dosage: 40 MG, ONCE TO TWICE DAILY
     Route: 048
     Dates: start: 20130424
  13. TOLPERISONE [Concomitant]
     Active Substance: TOLPERISONE
     Indication: MUSCLE SPASMS
     Dosage: 2 DF, BY NIGHT
     Route: 048
     Dates: start: 20140513
  14. FRUSEMID [Concomitant]
     Indication: LYMPHOEDEMA
  15. TOLPERISONE [Concomitant]
     Active Substance: TOLPERISONE
     Indication: MUSCLE RELAXANT THERAPY
  16. COSENTYX [Suspect]
     Active Substance: SECUKINUMAB
     Dosage: 300 MG, PER APPLICATION (PRE-FILLED PEN)
     Route: 065
     Dates: start: 20180603
  17. OXYGESIC [Concomitant]
     Active Substance: OXYCODONE
     Indication: PAIN
     Dosage: 40 MG, BID
     Route: 048
     Dates: start: 20161109
  18. AMPHO-MORONAL [Concomitant]
     Active Substance: AMPHOTERICIN B
     Indication: ORAL CANDIDIASIS
     Dosage: DISTRIBUTED SEVERAL TIMES DAILY IN THE ORAL CAVITY
     Route: 048
     Dates: start: 20180522, end: 20180530
  19. COSENTYX [Suspect]
     Active Substance: SECUKINUMAB
     Dosage: 300 MG, PER APPLICATION (PRE-FILLED PEN)
     Route: 065
     Dates: start: 20180527
  20. COSENTYX [Suspect]
     Active Substance: SECUKINUMAB
     Dosage: 300 MG, PER APPLICATION (PRE-FILLED PEN)
     Route: 065
     Dates: start: 20180610
  21. XARELTO [Concomitant]
     Active Substance: RIVAROXABAN
     Indication: ANTICOAGULANT THERAPY
     Dosage: 20 MG, ONCE DAILY PRANDIAL
     Route: 048
     Dates: start: 20170727
  22. COSENTYX [Suspect]
     Active Substance: SECUKINUMAB
     Dosage: 300 MG, PER APPLICATION (PRE-FILLED PEN)
     Route: 065
     Dates: start: 20180810
  23. FRUSEMID [Concomitant]
     Indication: DIURETIC THERAPY
     Dosage: 20 MG, BID
     Route: 048
     Dates: start: 20130424
  24. ARCOXIA [Concomitant]
     Active Substance: ETORICOXIB
     Indication: PAIN
     Dosage: 90 MG, QD
     Route: 048
     Dates: start: 20130424
  25. LORMETAZEPAM [Concomitant]
     Active Substance: LORMETAZEPAM
     Indication: SLEEP DISORDER
     Dosage: 1-2 MG, ONCE DAILY BY NIGHT AS NEEDED
     Route: 048
     Dates: start: 20160321

REACTIONS (2)
  - Arthritis bacterial [Recovering/Resolving]
  - Wound infection bacterial [Recovering/Resolving]

NARRATIVE: CASE EVENT DATE: 20181025
